FAERS Safety Report 4998346-1 (Version None)
Quarter: 2006Q2

REPORT INFORMATION
  Report Type: 
  Country: None (occurrence: None)
  Receive Date: 20060508
  Receipt Date: 20060425
  Transmission Date: 20061013
  Serious: Yes (Hospitalization)
  Sender: FDA-Public Use
  Company Number: 2006056139

PATIENT
  Age: 36 Year
  Sex: Female

DRUGS (11)
  1. SERTRALINE [Suspect]
     Indication: ILL-DEFINED DISORDER
     Dosage: 125 MG
  2. EPHEDRA (EPHEDRA) [Suspect]
     Indication: ILL-DEFINED DISORDER
     Dosage: 150 MG (75 MG, 2 IN 1 D),
  3. VITAMIN E [Concomitant]
  4. MEDROXYPROGESTERONE [Concomitant]
  5. CAFFEINE (CAFFEINE) [Concomitant]
  6. ASPIRIN [Concomitant]
  7. VITAMIN B COMPLEX CAP [Concomitant]
  8. VITAMIN C (VITAMIN C) [Concomitant]
  9. CALCIUM (CALCIUM) [Concomitant]
  10. MAGNESIUM (MAGNESIUM) [Concomitant]
  11. DIPHENHYDRAMINE HCL [Concomitant]

REACTIONS (10)
  - ALANINE AMINOTRANSFERASE INCREASED [None]
  - ASPARTATE AMINOTRANSFERASE INCREASED [None]
  - DISCOMFORT [None]
  - HEPATOTOXICITY [None]
  - LIVER FUNCTION TEST ABNORMAL [None]
  - MUSCLE SPASMS [None]
  - MYALGIA [None]
  - PAIN [None]
  - RHABDOMYOLYSIS [None]
  - SENSORY LOSS [None]
